FAERS Safety Report 5246701-7 (Version None)
Quarter: 2007Q1

REPORT INFORMATION
  Report Type: 
  Country: None (occurrence: None)
  Receive Date: 20070222
  Receipt Date: 20070222
  Transmission Date: 20070707
  Serious: No
  Sender: FDA-Public Use
  Company Number: None

PATIENT
  Sex: Female

DRUGS (1)
  1. CLORAZEPATE DIPOTASSIUM [Suspect]
     Indication: BIPOLAR DISORDER
     Dosage: 1/2 TAB QID PRN
     Dates: start: 20061101

REACTIONS (6)
  - CONFUSIONAL STATE [None]
  - DIZZINESS [None]
  - GASTRIC DISORDER [None]
  - NAUSEA [None]
  - PHARMACEUTICAL PRODUCT COMPLAINT [None]
  - TREMOR [None]
